FAERS Safety Report 12641906 (Version 1)
Quarter: 2016Q3

REPORT INFORMATION
  Report Type: Spontaneous
  Country: US (occurrence: US)
  Receive Date: 20160810
  Receipt Date: 20160810
  Transmission Date: 20161109
  Serious: No
  Sender: FDA-Public Use
  Company Number: US-TARO-2015TAR00697

PATIENT
  Age: 38 Year
  Sex: Female
  Weight: 56.69 kg

DRUGS (5)
  1. WELLBUTRIN XL [Concomitant]
     Active Substance: BUPROPION HYDROCHLORIDE
     Dosage: 300 MG, 1X/DAY
  2. CLOBETASOL PROPIONATE CREAM USP 0.05% [Suspect]
     Active Substance: CLOBETASOL PROPIONATE
     Indication: ECZEMA
     Dosage: 1 DOSAGE UNITS, 1-2X WEEK
     Route: 061
     Dates: start: 20150513, end: 201507
  3. VITAMIN B3 [Concomitant]
     Active Substance: NIACIN
  4. BIOTIN [Concomitant]
     Active Substance: BIOTIN
     Dosage: 3000 ?G, UNK
  5. FISH OIL [Concomitant]
     Active Substance: FISH OIL

REACTIONS (2)
  - Inappropriate schedule of drug administration [Recovered/Resolved]
  - Insomnia [Recovered/Resolved]

NARRATIVE: CASE EVENT DATE: 20150513
